FAERS Safety Report 4820665-X (Version None)
Quarter: 2005Q4

REPORT INFORMATION
  Report Type: 
  Country: None (occurrence: None)
  Receive Date: 20051103
  Receipt Date: 20051014
  Transmission Date: 20060501
  Serious: Yes (Life-Threatening, Hospitalization)
  Sender: FDA-Public Use
  Company Number: ABCAN-05-0427

PATIENT
  Age: 66 Year
  Sex: Female

DRUGS (20)
  1. ABRAXANE [Suspect]
     Indication: BREAST CANCER METASTATIC
     Dosage: 470 MG (260 MG/M2 EVERY 3 WEEKS)
     Route: 041
     Dates: start: 20051006, end: 20051011
  2. VICODIN [Concomitant]
  3. XELODA [Concomitant]
  4. EFFEXOR XR [Concomitant]
  5. SOTALOL HCL [Concomitant]
  6. LEVOTHYROXINE SODIUM [Concomitant]
  7. DIGOXIN [Concomitant]
  8. ACTOS [Concomitant]
  9. ELAVIL [Concomitant]
  10. WARFARIN SODIUM [Concomitant]
  11. AVANDIA [Concomitant]
  12. GLIPIZIDE [Concomitant]
  13. MORPHINE [Concomitant]
  14. LANTUS [Concomitant]
  15. LASIX [Concomitant]
  16. PRILOSEC [Concomitant]
  17. ARANESP [Concomitant]
  18. NEULASTA [Concomitant]
  19. ZOMETA [Concomitant]
  20. TETRACYCLINE [Concomitant]

REACTIONS (15)
  - ALANINE AMINOTRANSFERASE INCREASED [None]
  - ALPHA HAEMOLYTIC STREPTOCOCCAL INFECTION [None]
  - ASPARTATE AMINOTRANSFERASE INCREASED [None]
  - ASTHENIA [None]
  - BLOOD ALBUMIN DECREASED [None]
  - BLOOD BILIRUBIN INCREASED [None]
  - BLOOD CULTURE POSITIVE [None]
  - BLOOD GLUCOSE INCREASED [None]
  - FATIGUE [None]
  - LIVER FUNCTION TEST ABNORMAL [None]
  - MUCOSAL INFLAMMATION [None]
  - MYALGIA [None]
  - ORAL CANDIDIASIS [None]
  - PANCYTOPENIA [None]
  - SEPSIS [None]
